FAERS Safety Report 7758993-0 (Version None)
Quarter: 2011Q3

REPORT INFORMATION
  Report Type: 
  Country: None (occurrence: None)
  Receive Date: 20110919
  Receipt Date: 20110908
  Transmission Date: 20111222
  Serious: Yes (Other)
  Sender: FDA-Public Use
  Company Number: FR-UCBSA-040900

PATIENT

DRUGS (2)
  1. NEUPRO [Suspect]
     Route: 062
  2. NO CONCOMITANT MEDICATION [Concomitant]

REACTIONS (1)
  - HALLUCINATION [None]
